FAERS Safety Report 5236022-0 (Version None)
Quarter: 2007Q1

REPORT INFORMATION
  Report Type: 
  Country: None (occurrence: None)
  Receive Date: 20070212
  Receipt Date: 20070201
  Transmission Date: 20070707
  Serious: Yes (Death)
  Sender: FDA-Public Use
  Company Number: JP-JNJFOC-20060901980

PATIENT
  Sex: Female
  Weight: 54 kg

DRUGS (17)
  1. REMICADE [Suspect]
     Route: 042
  2. REMICADE [Suspect]
     Route: 042
  3. REMICADE [Suspect]
     Route: 042
  4. REMICADE [Suspect]
     Route: 042
  5. REMICADE [Suspect]
     Route: 042
  6. REMICADE [Suspect]
     Indication: RHEUMATOID ARTHRITIS
     Route: 042
  7. PREDNISOLONE [Suspect]
     Indication: RHEUMATOID ARTHRITIS
     Route: 048
  8. RHEUMATREX [Suspect]
     Indication: RHEUMATOID ARTHRITIS
     Route: 048
  9. METHOTREXATE [Concomitant]
     Route: 048
  10. NU-LOTAN [Concomitant]
     Route: 048
  11. LOPRESSOR [Concomitant]
     Route: 048
  12. URSO [Concomitant]
     Route: 048
  13. TRYPTANOL [Concomitant]
     Route: 048
  14. DOGMATYL [Concomitant]
     Route: 048
  15. ADRENAL HORMONE PREPARATION [Concomitant]
     Indication: RHEUMATOID ARTHRITIS
     Route: 048
  16. CALONAL [Concomitant]
     Indication: HEADACHE
     Route: 048
  17. RESTAMIN [Concomitant]
     Indication: HEADACHE
     Route: 048

REACTIONS (1)
  - PERITONITIS [None]
